FAERS Safety Report 18840875 (Version 2)
Quarter: 2021Q2

REPORT INFORMATION
  Report Type: Other
  Country: CA (occurrence: CA)
  Receive Date: 20210204
  Receipt Date: 20210614
  Transmission Date: 20210717
  Serious: Yes (Other)
  Sender: FDA-Public Use
  Company Number: CA-CELLTRION INC.-2021CA001087

PATIENT

DRUGS (16)
  1. ACETAMINOPHEN. [Concomitant]
     Active Substance: ACETAMINOPHEN
     Dosage: 1000 MG, 1 EVERY 6 HOURS
     Route: 048
  2. ALENDRONATE SODIUM. [Concomitant]
     Active Substance: ALENDRONATE SODIUM
     Dosage: 70 MG, 1 EVERY 1 WEEK
     Route: 048
  3. MIRTAZAPINE. [Concomitant]
     Active Substance: MIRTAZAPINE
  4. LANSOPRAZOLE. [Concomitant]
     Active Substance: LANSOPRAZOLE
     Dosage: 30 MG, 1 EVERY 1 DAY
     Route: 048
  5. SULFATRIM [Concomitant]
     Active Substance: SULFAMETHOXAZOLE\TRIMETHOPRIM
     Dosage: 800 MG, 1 EVERY 1 DAY
     Route: 048
  6. ATIVAN [Concomitant]
     Active Substance: LORAZEPAM
     Dosage: 2 MG, 3 EVERY 1 DAY
     Route: 048
  7. ACETYLSALICYLIC ACID [Concomitant]
     Active Substance: ASPIRIN
     Dosage: 80 MG, 1 EVERY 1 DAY
     Route: 048
  8. VARENICLINE TARTRATE [Concomitant]
     Active Substance: VARENICLINE TARTRATE
     Dosage: 1 MG, 2 EVERY 1 DAY
     Route: 048
  9. TYLENOL [Concomitant]
     Active Substance: ACETAMINOPHEN
     Dosage: 650 MG
     Route: 048
  10. RITUXIMAB (UNKNOWN) [Suspect]
     Active Substance: RITUXIMAB
     Indication: GRANULOMATOSIS WITH POLYANGIITIS
     Dosage: 1000 MG, 1 EVERY 2 WEEKS
     Route: 042
  11. DESOXIMETASONE. [Suspect]
     Active Substance: DESOXIMETASONE
     Indication: PRODUCT USED FOR UNKNOWN INDICATION
     Route: 065
  12. BENADRYL [Concomitant]
     Active Substance: DIPHENHYDRAMINE HYDROCHLORIDE
     Indication: PREMEDICATION
     Dosage: 25 MG
     Route: 048
  13. IRON [Concomitant]
     Active Substance: IRON
     Dosage: 300 MG, 2 EVERY 1 DAY
     Route: 048
  14. METHYLPREDNISOLONE SODIUM SUCCINATE. [Concomitant]
     Active Substance: METHYLPREDNISOLONE SODIUM SUCCINATE
     Dosage: 100 MG
     Route: 042
  15. PREDNISONE. [Concomitant]
     Active Substance: PREDNISONE
     Dosage: 10 MG, 1 EVERY 1 DAY
     Route: 048
  16. SALBUTAMOL [Concomitant]
     Active Substance: ALBUTEROL
     Dosage: 100 MG, 4 EVERY 1 DAY

REACTIONS (10)
  - Joint swelling [Unknown]
  - Peripheral swelling [Unknown]
  - Wound infection [Unknown]
  - Oxygen saturation decreased [Unknown]
  - Off label use [Unknown]
  - Gastrointestinal malformation [Unknown]
  - Weight increased [Unknown]
  - Heart rate increased [Unknown]
  - Respiratory rate increased [Unknown]
  - Anorectal disorder [Unknown]
